FAERS Safety Report 8578622-6 (Version None)
Quarter: 2012Q3

REPORT INFORMATION
  Report Type: 
  Country: None (occurrence: None)
  Receive Date: 20120808
  Receipt Date: 20120731
  Transmission Date: 20120928
  Serious: Yes (Other)
  Sender: FDA-Public Use
  Company Number: JP-ASTELLAS-2012JP007330

PATIENT
  Age: 79 Year
  Sex: Male

DRUGS (3)
  1. VESICARE [Suspect]
     Indication: HYPERTONIC BLADDER
     Dosage: 5 MG, UNKNOWN/D
     Route: 048
     Dates: start: 20120406, end: 20120626
  2. GLYBURIDE [Concomitant]
     Dosage: UNK
     Route: 048
  3. ALLOPURINOL [Concomitant]
     Dosage: UNK
     Route: 048

REACTIONS (1)
  - ARRHYTHMIA [None]
